FAERS Safety Report 5282968-7 (Version None)
Quarter: 2007Q1

REPORT INFORMATION
  Report Type: 
  Country: None (occurrence: None)
  Receive Date: 20070328
  Receipt Date: 20070328
  Transmission Date: 20070707
  Serious: Yes (Other)
  Sender: FDA-Public Use
  Company Number: None

PATIENT
  Age: 75 Year
  Sex: Male
  Weight: 63.5 kg

DRUGS (16)
  1. OMEPRAZOLE [Suspect]
  2. TIOTROPIUM [Concomitant]
  3. MOMETASONE FUROATE [Concomitant]
  4. VENLAFAXINE HCL [Concomitant]
  5. ZOLPIDEM TARTRATE [Concomitant]
  6. POTASSIUM CHLORIDE [Concomitant]
  7. METOPROLOL TARTRATE [Concomitant]
  8. CLOPIDOGREL BISULFATE [Concomitant]
  9. HYDROCORTISONE [Concomitant]
  10. SIMVASTATIN [Concomitant]
  11. DERMA CERIN [Concomitant]
  12. SYNTHROID [Concomitant]
  13. ALLOPURINOL [Concomitant]
  14. CAMPHOR / MENTHOL [Concomitant]
  15. FORMOTEROL FUMARATE [Concomitant]
  16. LEVALBUTEROL TART [Concomitant]

REACTIONS (1)
  - DIARRHOEA [None]
